FAERS Safety Report 8430569-1 (Version None)
Quarter: 2012Q2

REPORT INFORMATION
  Report Type: 
  Country: None (occurrence: None)
  Receive Date: 20120612
  Receipt Date: 20120606
  Transmission Date: 20120825
  Serious: Yes (Other)
  Sender: FDA-Public Use
  Company Number: JP-GLAXOSMITHKLINE-B0806821A

PATIENT
  Age: 64 Year
  Sex: Female

DRUGS (8)
  1. CINAL [Concomitant]
     Route: 048
  2. ROHYPNOL [Concomitant]
     Route: 065
  3. TRANSAMINE CAP [Concomitant]
     Route: 065
  4. DESYREL [Concomitant]
     Route: 048
  5. LAMICTAL [Suspect]
     Indication: DEPRESSION
     Dosage: 25MG PER DAY
     Route: 048
     Dates: start: 20120309, end: 20120319
  6. SEROQUEL [Concomitant]
     Route: 048
  7. MEILAX [Concomitant]
     Route: 048
  8. SELBEX [Concomitant]
     Route: 048

REACTIONS (2)
  - EYE DISORDER [None]
  - RASH GENERALISED [None]
